FAERS Safety Report 16479240 (Version 1)
Quarter: 2019Q2

REPORT INFORMATION
  Report Type: Spontaneous
  Country: US (occurrence: US)
  Receive Date: 20190626
  Receipt Date: 20190626
  Transmission Date: 20190711
  Serious: Yes (Other)
  Sender: FDA-Public Use
  Company Number: US-SAOL THERAPEUTICS-2019SAO00019

PATIENT
  Age: 72 Year
  Sex: Male

DRUGS (2)
  1. LIORESAL [Suspect]
     Active Substance: BACLOFEN
     Dosage: 1250 ?G, \DAY
     Route: 037
     Dates: end: 20190111
  2. LIORESAL [Suspect]
     Active Substance: BACLOFEN
     Dosage: 1125 ?G, \DAY
     Route: 037
     Dates: start: 20190111

REACTIONS (3)
  - Device infusion issue [Not Recovered/Not Resolved]
  - Musculoskeletal stiffness [Not Recovered/Not Resolved]
  - Complication associated with device [Not Recovered/Not Resolved]

NARRATIVE: CASE EVENT DATE: 20190111
